FAERS Safety Report 9884245 (Version 1)
Quarter: 2014Q1

REPORT INFORMATION
  Report Type: Spontaneous
  Country: US (occurrence: US)
  Receive Date: 20140210
  Receipt Date: 20140210
  Transmission Date: 20141002
  Serious: Yes (Hospitalization)
  Sender: FDA-Public Use
  Company Number: US-ALLERGAN-1316741US

PATIENT
  Age: 57 Year
  Sex: Female

DRUGS (5)
  1. BOTOX [Suspect]
     Indication: MUSCLE SPASMS
     Dosage: 100 UNITS, SINGLE
     Route: 030
     Dates: start: 20130806
  2. BOTOX [Suspect]
     Indication: MUSCLE SPASMS
  3. LATISSE 0.03% [Concomitant]
     Indication: GROWTH OF EYELASHES
     Dosage: UNK
  4. MEDICATIONS NOS [Concomitant]
     Indication: PRODUCT USED FOR UNKNOWN INDICATION
  5. JUVEDERM [Concomitant]
     Indication: SKIN WRINKLING

REACTIONS (5)
  - Pain [Unknown]
  - Off label use [Unknown]
  - Pain [Unknown]
  - Injection site haemorrhage [Recovered/Resolved]
  - Drug ineffective [Unknown]
